FAERS Safety Report 26125247 (Version 2)
Quarter: 2025Q4

REPORT INFORMATION
  Report Type: Spontaneous
  Country: US (occurrence: US)
  Receive Date: 20251205
  Receipt Date: 20251215
  Transmission Date: 20260117
  Serious: No
  Sender: ROCHE
  Company Number: US-ROCHE-10000445043

PATIENT
  Age: 24 Year
  Sex: Male

DRUGS (1)
  1. XOLAIR [Suspect]
     Active Substance: OMALIZUMAB
     Indication: Product used for unknown indication
     Dosage: INJECT THE CONTENTS OF 1 DEVICE UNDER THE SKIN EVERY 4 WEEKS (TOTAL: 300MG EVERY 4 WEEKS)
     Route: 058

REACTIONS (2)
  - No adverse event [Unknown]
  - Product dose omission issue [Unknown]
